FAERS Safety Report 6032230-X (Version None)
Quarter: 2009Q1

REPORT INFORMATION
  Report Type: 
  Country: None (occurrence: None)
  Receive Date: 20090108
  Receipt Date: 20090105
  Transmission Date: 20090719
  Serious: Yes (Death)
  Sender: FDA-Public Use
  Company Number: ZW-B.I. PHARMACEUTICALS,INC./RIDGEFIELD-2008-BP-17588BP

PATIENT
  Sex: Female
  Weight: 3 kg

DRUGS (1)
  1. VIRAMUNE [Suspect]
     Indication: HIV INFECTION
     Dosage: 1.5ML
     Route: 048
     Dates: start: 20081024, end: 20081116

REACTIONS (10)
  - CONGENITAL COAGULOPATHY [None]
  - DEATH NEONATAL [None]
  - EOSINOPHIL COUNT INCREASED [None]
  - EPISTAXIS [None]
  - HAEMORRHAGE NEONATAL [None]
  - MONOCYTE COUNT INCREASED [None]
  - PALLOR [None]
  - PLATELET COUNT INCREASED [None]
  - POOR WEIGHT GAIN NEONATAL [None]
  - SEPSIS NEONATAL [None]
